FAERS Safety Report 7156947-9 (Version None)
Quarter: 2010Q4

REPORT INFORMATION
  Report Type: 
  Country: None (occurrence: None)
  Receive Date: 20101214
  Receipt Date: 20100119
  Transmission Date: 20110411
  Serious: No
  Sender: FDA-Public Use
  Company Number: US-ASTRAZENECA-2010SE02342

PATIENT
  Age: 929 Month
  Sex: Female
  Weight: 99.8 kg

DRUGS (4)
  1. CRESTOR [Suspect]
     Route: 048
     Dates: start: 20091001, end: 20091229
  2. VITAMIN E [Concomitant]
  3. CALCIUM [Concomitant]
  4. ASCORBIC ACID [Concomitant]

REACTIONS (2)
  - CHEST PAIN [None]
  - PAIN IN EXTREMITY [None]
